FAERS Safety Report 10196091 (Version 2)
Quarter: 2014Q2

REPORT INFORMATION
  Report Type: Spontaneous
  Country: AU (occurrence: AU)
  Receive Date: 20140527
  Receipt Date: 20140527
  Transmission Date: 20141212
  Serious: Yes (Hospitalization)
  Sender: FDA-Public Use
  Company Number: AU-BAYER-2014-067967

PATIENT
  Age: 40 Year
  Sex: Male

DRUGS (1)
  1. KOGENATE FS [Suspect]
     Dosage: 1000 IU

REACTIONS (2)
  - Joint swelling [None]
  - Haemarthrosis [None]
